FAERS Safety Report 6543810-7 (Version None)
Quarter: 2010Q1

REPORT INFORMATION
  Report Type: 
  Country: None (occurrence: None)
  Receive Date: 20100119
  Receipt Date: 20100119
  Transmission Date: 20100710
  Serious: Yes (Hospitalization)
  Sender: FDA-Public Use
  Company Number: None

PATIENT
  Age: 40 Year
  Sex: Female
  Weight: 114.76 kg

DRUGS (1)
  1. ALLI [Suspect]
     Indication: WEIGHT CONTROL
     Dosage: 3 A DAY 1 BEFORE EACH MEAL PO
     Route: 048
     Dates: start: 20090101, end: 20090522

REACTIONS (1)
  - RECTAL HAEMORRHAGE [None]
